FAERS Safety Report 4578363-6 (Version None)
Quarter: 2005Q1

REPORT INFORMATION
  Report Type: 
  Country: None (occurrence: None)
  Receive Date: 20050202
  Receipt Date: 20050202
  Transmission Date: 20050727
  Serious: Yes (Hospitalization)
  Sender: FDA-Public Use
  Company Number: None

PATIENT
  Age: 41 Year
  Sex: Female
  Weight: 78.4723 kg

DRUGS (2)
  1. LINEZOLID [Suspect]
     Indication: ARTHRITIS
     Dosage: 600 MG IV Q 12 H
     Route: 042
  2. LINEZOLID [Suspect]
     Indication: STAPHYLOCOCCAL INFECTION
     Dosage: 600 MG IV Q 12 H
     Route: 042

REACTIONS (1)
  - HYPOACUSIS [None]
